FAERS Safety Report 5796910-3 (Version None)
Quarter: 2008Q2

REPORT INFORMATION
  Report Type: 
  Country: None (occurrence: None)
  Receive Date: 20080627
  Receipt Date: 20080620
  Transmission Date: 20081010
  Serious: Yes (Hospitalization)
  Sender: FDA-Public Use
  Company Number: 6043780

PATIENT
  Age: 89 Year
  Sex: Female

DRUGS (6)
  1. BISOPROLOL FUMARATE [Suspect]
     Indication: HYPERTENSION
     Dosage: 1.5 DOSAGE FORMS (1.5 DOSAGE FORMS) ORAL
     Route: 048
  2. CORDARONE [Suspect]
     Indication: ARRHYTHMIA
     Dosage: 200 MG (200 MG, 1 D) ORAL
     Route: 048
     Dates: start: 20080326
  3. ALDACTONE [Concomitant]
  4. AMLOR (CAPSULE) (AMLODIPINE BESILATE) [Concomitant]
  5. PREVISCAN (TABLET) (FLUINDIONE) [Concomitant]
  6. FUROSEMIDE [Concomitant]

REACTIONS (7)
  - ASTHENIA [None]
  - BLOOD PRESSURE DECREASED [None]
  - BRADYCARDIA [None]
  - CARDIAC FAILURE [None]
  - DRUG INTERACTION [None]
  - FALL [None]
  - RENAL FAILURE [None]
